FAERS Safety Report 4559015-5 (Version None)
Quarter: 2005Q1

REPORT INFORMATION
  Report Type: 
  Country: None (occurrence: None)
  Receive Date: 20050124
  Receipt Date: 20041129
  Transmission Date: 20050727
  Serious: Yes (Hospitalization)
  Sender: FDA-Public Use
  Company Number: FR-BRISTOL-MYERS SQUIBB COMPANY-12780557

PATIENT
  Age: 35 Year
  Sex: Male
  Weight: 75 kg

DRUGS (1)
  1. PRAVASTATIN [Suspect]
     Indication: HYPERCHOLESTEROLAEMIA
     Dosage: DOSAGE FORM = TABLET
     Route: 048

REACTIONS (1)
  - TENDON RUPTURE [None]
